FAERS Safety Report 11910763 (Version 1)
Quarter: 2016Q1

REPORT INFORMATION
  Report Type: Spontaneous
  Country: US (occurrence: None)
  Receive Date: 20160111
  Receipt Date: 20160111
  Transmission Date: 20160526
  Serious: No
  Sender: FDA-Public Use
  Company Number: None

PATIENT
  Age: 52 Year
  Sex: Female
  Weight: 136.08 kg

DRUGS (17)
  1. XARELTO [Concomitant]
     Active Substance: RIVAROXABAN
  2. VENTOLIN HFA [Concomitant]
     Active Substance: ALBUTEROL SULFATE
  3. LEVOTHYROX [Concomitant]
     Active Substance: LEVOTHYROXINE
  4. VITAMIN D 2 [Concomitant]
  5. NYSTATIN CREAM [Concomitant]
     Active Substance: NYSTATIN
  6. KADIAN [Concomitant]
     Active Substance: MORPHINE SULFATE
  7. FERROUS SULFATE (IRON) [Concomitant]
  8. DULERA [Concomitant]
     Active Substance: FORMOTEROL FUMARATE DIHYDRATE\MOMETASONE FUROATE
  9. BUDESONIDE. [Concomitant]
     Active Substance: BUDESONIDE
  10. NORTRIPTYLINE (PAMELOR) [Concomitant]
  11. MORPHINE SULFATE IR [Concomitant]
  12. REPLENS [Concomitant]
     Active Substance: CARBOMER 934\GLYCERIN\METHYLPARABEN\PROPYLPARABEN\SODIUM HYDROXIDE
  13. ALBUTEROL SULFATE. [Concomitant]
     Active Substance: ALBUTEROL SULFATE
  14. MELATONIN [Concomitant]
     Active Substance: MELATONIN
  15. WARFARIN [Suspect]
     Active Substance: WARFARIN
     Indication: PULMONARY EMBOLISM
     Dosage: 1 PILL
     Route: 048
     Dates: start: 20150918, end: 20151118
  16. LOSARTAN (COOZAR) [Concomitant]
  17. SINGULAIR [Concomitant]
     Active Substance: MONTELUKAST SODIUM

REACTIONS (1)
  - Alopecia [None]

NARRATIVE: CASE EVENT DATE: 20150924
